FAERS Safety Report 21607459 (Version 3)
Quarter: 2023Q1

REPORT INFORMATION
  Report Type: Report from Study
  Country: US (occurrence: US)
  Receive Date: 20221117
  Receipt Date: 20230228
  Transmission Date: 20230417
  Serious: Yes (Other)
  Sender: FDA-Public Use
  Company Number: US-ABBVIE-4157198

PATIENT
  Sex: Male

DRUGS (4)
  1. HUMIRA [Suspect]
     Active Substance: ADALIMUMAB
     Indication: Uveitis
     Dosage: STRENGTH 40 MG
     Route: 058
     Dates: start: 20211119
  2. HUMIRA [Suspect]
     Active Substance: ADALIMUMAB
     Dosage: STRENGTH 40 MG
     Route: 058
     Dates: start: 20220215, end: 202211
  3. HUMIRA [Suspect]
     Active Substance: ADALIMUMAB
     Dosage: STRENGTH 40 MG
     Route: 058
     Dates: start: 20211112
  4. HUMIRA [Suspect]
     Active Substance: ADALIMUMAB
     Dosage: FOR ONE MONTH ONLY?STRENGTH 40 MG
     Route: 058
     Dates: start: 20221215

REACTIONS (5)
  - Glaucoma [Unknown]
  - Uveitis [Unknown]
  - Herpes zoster [Recovered/Resolved]
  - Streptococcal infection [Recovered/Resolved]
  - Drug ineffective [Unknown]
